FAERS Safety Report 16470451 (Version 1)
Quarter: 2019Q2

REPORT INFORMATION
  Report Type: Spontaneous
  Country: JP (occurrence: JP)
  Receive Date: 20190624
  Receipt Date: 20190624
  Transmission Date: 20190711
  Serious: Yes (Other)
  Sender: FDA-Public Use
  Company Number: JP-NODEN PHARMA DAC-NOD-2013-000612

PATIENT
  Age: 42 Year
  Sex: Male
  Weight: 111 kg

DRUGS (4)
  1. ALISKIREN [Suspect]
     Active Substance: ALISKIREN
     Indication: HYPERTENSION
     Dosage: 150 MILLIGRAM, QD
     Route: 065
  2. INDAPAMIDE. [Concomitant]
     Active Substance: INDAPAMIDE
     Indication: HYPERTENSIVE HEART DISEASE
     Dosage: 1 MG/DAY
  3. OLMESARTAN [Concomitant]
     Active Substance: OLMESARTAN
     Indication: HYPERTENSIVE HEART DISEASE
     Dosage: 40 MG/DAY
     Route: 065
  4. METHYLDOPA. [Concomitant]
     Active Substance: METHYLDOPA
     Indication: HYPERTENSIVE HEART DISEASE
     Dosage: 500 MILLIGRAM

REACTIONS (5)
  - Renal disorder [Recovering/Resolving]
  - High density lipoprotein decreased [Unknown]
  - Hypertriglyceridaemia [Recovering/Resolving]
  - Lymphocyte stimulation test positive [Unknown]
  - Eosinophilia [Recovering/Resolving]
